FAERS Safety Report 8346642-2 (Version None)
Quarter: 2012Q2

REPORT INFORMATION
  Report Type: 
  Country: None (occurrence: None)
  Receive Date: 20120509
  Receipt Date: 20120504
  Transmission Date: 20120825
  Serious: Yes (Other)
  Sender: FDA-Public Use
  Company Number: PHHY2012BR038835

PATIENT
  Sex: Female

DRUGS (2)
  1. CALCIUM CARBONATE [Concomitant]
  2. ZOLEDRONOC ACID [Suspect]
     Dosage: 5 MG/100 ML
     Route: 042
     Dates: start: 20110201

REACTIONS (1)
  - DEMENTIA ALZHEIMER'S TYPE [None]
